FAERS Safety Report 6911241-3 (Version None)
Quarter: 2010Q3

REPORT INFORMATION
  Report Type: 
  Country: None (occurrence: None)
  Receive Date: 20100806
  Receipt Date: 20100727
  Transmission Date: 20110219
  Serious: Yes (Other)
  Sender: FDA-Public Use
  Company Number: PHHY2010JP49998

PATIENT

DRUGS (1)
  1. NEORAL [Suspect]
     Indication: PSORIASIS
     Route: 048

REACTIONS (3)
  - DIARRHOEA [None]
  - LARGE INTESTINE CARCINOMA [None]
  - PSORIASIS [None]
